FAERS Safety Report 7527748-4 (Version None)
Quarter: 2011Q2

REPORT INFORMATION
  Report Type: 
  Country: None (occurrence: None)
  Receive Date: 20110607
  Receipt Date: 20110527
  Transmission Date: 20111010
  Serious: No
  Sender: FDA-Public Use
  Company Number: JP-NOVOPROD-328062

PATIENT
  Age: 37 Year
  Sex: Female
  Weight: 37 kg

DRUGS (3)
  1. VICTOZA [Suspect]
     Dosage: 0.6 MG, QD
     Route: 058
     Dates: start: 20110311, end: 20110321
  2. VICTOZA [Suspect]
     Dosage: 0.9 MG, UNK
     Route: 058
     Dates: start: 20110322
  3. VICTOZA [Suspect]
     Indication: TYPE 2 DIABETES MELLITUS
     Dosage: 0.3 MG, QD
     Route: 058
     Dates: start: 20110304, end: 20110310

REACTIONS (2)
  - CONSTIPATION [None]
  - COLITIS ISCHAEMIC [None]
